FAERS Safety Report 20845806 (Version 9)
Quarter: 2025Q1

REPORT INFORMATION
  Report Type: Spontaneous
  Country: US (occurrence: US)
  Receive Date: 20220518
  Receipt Date: 20250304
  Transmission Date: 20250408
  Serious: No
  Sender: PFIZER
  Company Number: US-PFIZER INC-2014033226

PATIENT
  Age: 71 Year
  Sex: Male

DRUGS (15)
  1. TIKOSYN [Suspect]
     Active Substance: DOFETILIDE
     Dosage: 500 UG, 2X/DAY
     Route: 048
  2. ALBUTEROL SULFATE [Concomitant]
     Active Substance: ALBUTEROL SULFATE
     Route: 055
  3. AVODART [Concomitant]
     Active Substance: DUTASTERIDE
     Dosage: 0.5 MG, DAILY
     Route: 048
  4. FINASTERIDE [Concomitant]
     Active Substance: FINASTERIDE
     Dosage: 5 MG, DAILY
     Route: 048
  5. FLOVENT [Concomitant]
     Active Substance: FLUTICASONE PROPIONATE
     Dosage: 88 UG, 2X/DAY [INHALE 2 PUFF (88MCG) BY INHALATION ROUTE 2 TIMES EVERY DAY ]
     Route: 055
  6. FUROSEMIDE [Concomitant]
     Active Substance: FUROSEMIDE
     Dosage: 20 MG, 2X/DAY
     Route: 048
  7. LIDODERM [Concomitant]
     Active Substance: LIDOCAINE
     Dosage: 700 MG, DAILY [APPLY 1 PATCH BY TRANSDERMAL ROUTE EVERY DAY]
     Route: 062
  8. NAPROXEN [Concomitant]
     Active Substance: NAPROXEN
     Dosage: 500 MG, 2X/DAY [TAKE 1 TABLET (500MG) BY ORAL ROUTE 2 TIMES EVERY DAY WITH FOOD]
     Route: 048
  9. SINGULAIR [Concomitant]
     Active Substance: MONTELUKAST SODIUM
     Dosage: 10 MG, 2X/DAY [TAKE 1 TABLET (10MG) BY ORAL ROUTE 2 TIMES EVERY DAY IN THE EVENING]
     Route: 048
  10. MAGNESIUM CHLORIDE [Concomitant]
     Active Substance: MAGNESIUM CHLORIDE
  11. SPIRONOLACTONE [Concomitant]
     Active Substance: SPIRONOLACTONE
     Dosage: 12.5 MG, DAILY [TAKE 0.5 TABLET (12.5MG) BY ORAL ROUTE EVERY DAY ]
     Route: 048
  12. TAMSULOSIN ER [Concomitant]
     Dosage: 0.4 MG, DAILY [EVERY DAY 1/2 HOUR FOLLOWING THE SAME MEAL EACH DAY]
     Route: 048
  13. WARFARIN [Concomitant]
     Active Substance: WARFARIN
     Dosage: 1 MG, DAILY
     Route: 048
  14. LEVEMIR [Concomitant]
     Active Substance: INSULIN DETEMIR
     Route: 058
  15. NOVOLOG [Concomitant]
     Active Substance: INSULIN ASPART
     Route: 058

REACTIONS (3)
  - Amnesia [Unknown]
  - Memory impairment [Not Recovered/Not Resolved]
  - Product dispensing error [Unknown]
